FAERS Safety Report 14109907 (Version 1)
Quarter: 2017Q4

REPORT INFORMATION
  Report Type: Spontaneous
  Country: US (occurrence: US)
  Receive Date: 20171020
  Receipt Date: 20171020
  Transmission Date: 20180321
  Serious: No
  Sender: FDA-Public Use
  Company Number: US-TEVA-734295ACC

PATIENT
  Age: 52 Year
  Sex: Female
  Weight: 67.65 kg

DRUGS (1)
  1. EQUATE MICONAZOLE 3 [Suspect]
     Active Substance: MICONAZOLE
     Dates: start: 20161121, end: 20161121

REACTIONS (1)
  - Burning sensation [Unknown]

NARRATIVE: CASE EVENT DATE: 20161121
